FAERS Safety Report 7904855-5 (Version None)
Quarter: 2011Q4

REPORT INFORMATION
  Report Type: 
  Country: None (occurrence: None)
  Receive Date: 20111109
  Receipt Date: 20111029
  Transmission Date: 20120403
  Serious: Yes (Other)
  Sender: FDA-Public Use
  Company Number: PHHY2011DE96910

PATIENT

DRUGS (4)
  1. MOOD STABILIZER [Concomitant]
  2. ANTIDEPRESSANTS [Concomitant]
  3. MAJOR AND MINOR TRANQUILIZERS [Concomitant]
  4. CLOZAPINE [Suspect]

REACTIONS (4)
  - WHITE BLOOD CELL COUNT INCREASED [None]
  - WEIGHT INCREASED [None]
  - GAMMA-GLUTAMYLTRANSFERASE INCREASED [None]
  - C-REACTIVE PROTEIN INCREASED [None]
